FAERS Safety Report 14764893 (Version 1)
Quarter: 2018Q2

REPORT INFORMATION
  Report Type: Spontaneous
  Country: US (occurrence: US)
  Receive Date: 20180410
  Receipt Date: 20180410
  Transmission Date: 20180711
  Serious: Yes (Other)
  Sender: FDA-Public Use
  Company Number: None

PATIENT
  Age: 81 Year
  Sex: Female
  Weight: 81 kg

DRUGS (10)
  1. MULTAQ [Suspect]
     Active Substance: DRONEDARONE
     Indication: HEART RATE IRREGULAR
     Dosage: ?          QUANTITY:60 DF DOSAGE FORM;?
     Route: 048
     Dates: start: 20180322, end: 20180410
  2. BACLOFEN. [Concomitant]
     Active Substance: BACLOFEN
  3. VITAMIN C [Concomitant]
     Active Substance: ASCORBIC ACID
  4. FOLIC ACID. [Concomitant]
     Active Substance: FOLIC ACID
  5. NAPROSYN [Concomitant]
     Active Substance: NAPROXEN
  6. VITAMIN E [Concomitant]
     Active Substance: .ALPHA.-TOCOPHEROL
  7. CALCIUM [Concomitant]
     Active Substance: CALCIUM
  8. VITAMIN D3 [Concomitant]
     Active Substance: CHOLECALCIFEROL
  9. ACETOPHENOMEN [Concomitant]
  10. HYZAAR [Concomitant]
     Active Substance: HYDROCHLOROTHIAZIDE\LOSARTAN POTASSIUM

REACTIONS (4)
  - Hypersensitivity [None]
  - Nausea [None]
  - Allergic reaction to excipient [None]
  - Disturbance in attention [None]

NARRATIVE: CASE EVENT DATE: 20180410
